FAERS Safety Report 26081389 (Version 1)
Quarter: 2025Q4

REPORT INFORMATION
  Report Type: Report from Study
  Country: BR (occurrence: BR)
  Receive Date: 20251124
  Receipt Date: 20251124
  Transmission Date: 20260118
  Serious: Yes (Other)
  Sender: CELLTRION
  Company Number: BR-CELLTRION INC.-2025BR042288

PATIENT

DRUGS (6)
  1. INFLIXIMAB-DYYB [Suspect]
     Active Substance: INFLIXIMAB-DYYB
     Indication: Colitis ulcerative
     Dosage: 3 AMPOULES EVERY 8 WEEKS
     Route: 042
     Dates: start: 20230216
  2. ROSUVASTATIN [Concomitant]
     Active Substance: ROSUVASTATIN
     Indication: Blood cholesterol increased
     Dosage: 1 TABLET AT NIGHT - HAS USED IT FOR YEARS
     Route: 065
  3. LOSARTAN [Concomitant]
     Active Substance: LOSARTAN
     Indication: Hypertension
     Dosage: 1 TABLET PER DAY - STARTED LONG TIME AGO
     Route: 065
  4. SIMVASTATIN [Concomitant]
     Active Substance: SIMVASTATIN
     Indication: Hypertension
     Dosage: UNK
     Route: 065
  5. AMLODIPINE [Concomitant]
     Active Substance: AMLODIPINE BESYLATE
     Indication: Hypertension
     Dosage: 1 TABLET AT NIGHT
     Route: 065
  6. DIOSMIN [Concomitant]
     Active Substance: DIOSMIN
     Indication: Poor peripheral circulation
     Dosage: 1 TABLET EVERY 12 HOURS - STARTED APPROXIMATELY 3 YEARS AGO WITH STOP DATE 3 YEARS AGO
     Route: 065

REACTIONS (7)
  - Pneumonia [Recovered/Resolved]
  - Dysentery [Unknown]
  - Dysphonia [Recovered/Resolved]
  - Vision blurred [Unknown]
  - Influenza [Recovered/Resolved]
  - Pyrexia [Unknown]
  - Drug ineffective [Unknown]

NARRATIVE: CASE EVENT DATE: 20251110
